FAERS Safety Report 12162686 (Version 3)
Quarter: 2016Q4

REPORT INFORMATION
  Report Type: Spontaneous
  Country: US (occurrence: US)
  Receive Date: 20160309
  Receipt Date: 20161012
  Transmission Date: 20170207
  Serious: Yes (Hospitalization, Other)
  Sender: FDA-Public Use
  Company Number: US-009507513-1603USA003427

PATIENT
  Sex: Female
  Weight: 56.69 kg

DRUGS (3)
  1. NUVARING [Suspect]
     Active Substance: ETHINYL ESTRADIOL\ETONOGESTREL
     Indication: MENSTRUATION IRREGULAR
  2. IBUPROFEN. [Concomitant]
     Active Substance: IBUPROFEN
     Indication: BACK PAIN
     Dosage: 400 MG, QW
     Route: 065
     Dates: start: 2013, end: 2014
  3. NUVARING [Suspect]
     Active Substance: ETHINYL ESTRADIOL\ETONOGESTREL
     Indication: CONTRACEPTION
     Dosage: 1 DF, 3 WEEKS IN, ONE WEEK OUT
     Route: 067
     Dates: start: 201309, end: 201403

REACTIONS (6)
  - Constipation [Unknown]
  - Swelling [Unknown]
  - Pain [Unknown]
  - Pulmonary embolism [Unknown]
  - Lung disorder [Unknown]
  - Narcolepsy [Unknown]

NARRATIVE: CASE EVENT DATE: 2014
